FAERS Safety Report 14543915 (Version 2)
Quarter: 2018Q4

REPORT INFORMATION
  Report Type: Spontaneous
  Country: BR (occurrence: BR)
  Receive Date: 20180216
  Receipt Date: 20181204
  Transmission Date: 20190204
  Serious: Yes (Other)
  Sender: FDA-Public Use
  Company Number: BR-BIOMARINAP-BR-2018-117104

PATIENT
  Sex: Female
  Weight: 80.5 kg

DRUGS (5)
  1. ALDURAZYME [Suspect]
     Active Substance: LARONIDASE
     Dosage: 40 DOSAGE FORM
     Route: 041
     Dates: start: 2017, end: 20171101
  2. ALDURAZYME [Suspect]
     Active Substance: LARONIDASE
     Indication: MUCOPOLYSACCHARIDOSIS
     Dosage: 40 DOSAGE FORM
     Route: 041
     Dates: start: 20090709, end: 201107
  3. ALDURAZYME [Suspect]
     Active Substance: LARONIDASE
     Dosage: 40 DOSAGE FORM
     Route: 041
  4. ALDURAZYME [Suspect]
     Active Substance: LARONIDASE
     Dosage: UNK, QOW
     Route: 041
     Dates: end: 201609
  5. ALDURAZYME [Suspect]
     Active Substance: LARONIDASE
     Dosage: 40 DOSAGE FORM
     Route: 041

REACTIONS (7)
  - Muscle spasms [Not Recovered/Not Resolved]
  - Condition aggravated [Not Recovered/Not Resolved]
  - Arteriosclerosis coronary artery [Not Recovered/Not Resolved]
  - Abdominal hernia [Not Recovered/Not Resolved]
  - Visual impairment [Not Recovered/Not Resolved]
  - Spinal disorder [Not Recovered/Not Resolved]
  - Paraesthesia [Not Recovered/Not Resolved]
